FAERS Safety Report 24433070 (Version 1)
Quarter: 2024Q4

REPORT INFORMATION
  Report Type: Report from Study
  Country: US (occurrence: US)
  Receive Date: 20241014
  Receipt Date: 20241014
  Transmission Date: 20250114
  Serious: Yes (Other)
  Sender: AEGERION
  Company Number: US-CHIESI PHARMA JAPAN K.K.-AEGR007469

PATIENT
  Sex: Female
  Weight: 58.5 kg

DRUGS (25)
  1. METRELEPTIN [Suspect]
     Active Substance: METRELEPTIN
     Indication: Acquired generalised lipodystrophy
     Dosage: 2.5 MILLIGRAM, QD
     Route: 058
     Dates: start: 20200831, end: 20201026
  2. METRELEPTIN [Suspect]
     Active Substance: METRELEPTIN
     Dosage: 3.75 MILLIGRAM, QD
     Route: 058
     Dates: start: 20201027, end: 20210301
  3. METRELEPTIN [Suspect]
     Active Substance: METRELEPTIN
     Dosage: 5 MILLIGRAM, QD
     Route: 058
     Dates: start: 20210302, end: 20220606
  4. METRELEPTIN [Suspect]
     Active Substance: METRELEPTIN
     Dosage: 1.25 MILLIGRAM, QD
     Route: 058
     Dates: start: 20210702, end: 20210716
  5. METRELEPTIN [Suspect]
     Active Substance: METRELEPTIN
     Dosage: 2.5 MILLIGRAM, QD
     Route: 058
     Dates: start: 20210717, end: 20211017
  6. METRELEPTIN [Suspect]
     Active Substance: METRELEPTIN
     Dosage: 1.25 MILLIGRAM, QD
     Route: 058
     Dates: start: 20211018, end: 20231013
  7. METRELEPTIN [Suspect]
     Active Substance: METRELEPTIN
     Dosage: 2.5 MILLIGRAM, QD
     Route: 058
     Dates: start: 20231013, end: 20240314
  8. METRELEPTIN [Suspect]
     Active Substance: METRELEPTIN
     Dosage: 5 MILLIGRAM, QD
     Route: 058
     Dates: start: 20240314
  9. METFORMIN HYDROCHLORIDE [Concomitant]
     Active Substance: METFORMIN HYDROCHLORIDE
     Indication: Diabetes mellitus
     Dosage: 850 MILLIGRAM, BID
     Route: 048
     Dates: start: 20200601, end: 20201213
  10. METFORMIN HYDROCHLORIDE [Concomitant]
     Active Substance: METFORMIN HYDROCHLORIDE
     Dosage: 1000 MILLIGRAM, BID
     Route: 048
     Dates: start: 20201214
  11. FISH OIL [Concomitant]
     Active Substance: FISH OIL
     Indication: Hypertriglyceridaemia
     Dosage: 2 GRAM, BID
     Route: 048
     Dates: start: 2015, end: 202102
  12. FISH OIL [Concomitant]
     Active Substance: FISH OIL
     Indication: Dyslipidaemia
     Dosage: 2 GRAM, BID
     Route: 048
     Dates: start: 202205
  13. GEMFIBROZIL [Concomitant]
     Active Substance: GEMFIBROZIL
     Indication: Hypertriglyceridaemia
     Dosage: 600 MILLIGRAM, BID
     Route: 048
     Dates: start: 2012
  14. LEVOTHYROXINE SODIUM [Concomitant]
     Active Substance: LEVOTHYROXINE SODIUM
     Indication: Hypothyroidism
     Dosage: 50 MICROGRAM, QD
     Route: 048
     Dates: start: 2011
  15. EMPAGLIFLOZIN [Concomitant]
     Active Substance: EMPAGLIFLOZIN
     Indication: Diabetes mellitus
     Dosage: 10 MILLIGRAM, QD
     Route: 048
     Dates: start: 20220525, end: 20220802
  16. EMPAGLIFLOZIN [Concomitant]
     Active Substance: EMPAGLIFLOZIN
     Dosage: 25 MILLIGRAM, QD
     Route: 048
     Dates: start: 20220803
  17. VITAMIN D3 [Concomitant]
     Active Substance: CHOLECALCIFEROL
     Indication: Supplementation therapy
     Dosage: 1000 INTERNATIONAL UNIT, QD
     Route: 048
     Dates: start: 202209
  18. ESTRADIOL [Concomitant]
     Active Substance: ESTRADIOL
     Indication: Hormone replacement therapy
     Dosage: 0.05 MILLIGRAM, ONCE A WEEK
     Route: 003
     Dates: start: 20230519
  19. MEDROXYPROGESTERONE ACETATE [Concomitant]
     Active Substance: MEDROXYPROGESTERONE ACETATE
     Indication: Hormone replacement therapy
     Dosage: 10 MILLIGRAM, QD
     Route: 048
     Dates: start: 20230519
  20. AMLODIPINE [Concomitant]
     Active Substance: AMLODIPINE BESYLATE
     Indication: Hypertension
     Dosage: 2.5 MILLIGRAM, QD
     Route: 048
     Dates: start: 20230516
  21. OLMESARTAN [Concomitant]
     Active Substance: OLMESARTAN
     Indication: Hypertension
     Dosage: 20 MILLIGRAM, QD
     Route: 048
     Dates: start: 20230413
  22. EVOLOCUMAB [Concomitant]
     Active Substance: EVOLOCUMAB
     Indication: Dyslipidaemia
     Dosage: 140 MILLIGRAM, EVERY 2 WEEKS
     Route: 058
     Dates: start: 20240112
  23. TIRZEPATIDE [Concomitant]
     Active Substance: TIRZEPATIDE
     Indication: Diabetes mellitus
     Dosage: 2.5 MILLIGRAM, ONCE A WEEK
     Route: 058
     Dates: start: 20240814
  24. INSULIN LISPRO [Concomitant]
     Active Substance: INSULIN LISPRO
     Indication: Diabetes mellitus
     Dosage: 6 INTERNATIONAL UNIT, TID
     Route: 058
     Dates: start: 20240627
  25. INSULIN GLARGINE [Concomitant]
     Active Substance: INSULIN GLARGINE
     Indication: Diabetes mellitus
     Dosage: 20 INTERNATIONAL UNIT, QD
     Route: 058
     Dates: start: 20240717

REACTIONS (2)
  - Basal cell carcinoma [Not Recovered/Not Resolved]
  - Basal cell carcinoma [Not Recovered/Not Resolved]

NARRATIVE: CASE EVENT DATE: 20240101
